FAERS Safety Report 25545465 (Version 1)
Quarter: 2025Q3

REPORT INFORMATION
  Report Type: Spontaneous
  Country: EU (occurrence: None)
  Receive Date: 20250711
  Receipt Date: 20250711
  Transmission Date: 20251020
  Serious: Yes (Hospitalization, Other)
  Sender: B. BRAUN MEDICAL INC.
  Company Number: None

PATIENT
  Age: 28 Year
  Sex: Female

DRUGS (2)
  1. ACETAMINOPHEN [Suspect]
     Active Substance: ACETAMINOPHEN
     Dates: start: 20210323, end: 20210323
  2. SERTRALINE [Suspect]
     Active Substance: SERTRALINE HYDROCHLORIDE
     Dates: start: 20210323, end: 20210323

REACTIONS (7)
  - Mydriasis [Recovering/Resolving]
  - Dizziness [Recovering/Resolving]
  - Diplopia [Recovering/Resolving]
  - Nausea [Recovering/Resolving]
  - Intentional overdose [Unknown]
  - Suicide attempt [Unknown]
  - Toxicity to various agents [Unknown]

NARRATIVE: CASE EVENT DATE: 20210323
